FAERS Safety Report 23652827 (Version 1)
Quarter: 2024Q1

REPORT INFORMATION
  Report Type: Spontaneous
  Country: US (occurrence: DE)
  Receive Date: 20240320
  Receipt Date: 20240320
  Transmission Date: 20240410
  Serious: Yes (Death)
  Sender: FDA-Public Use
  Company Number: US-USWM, LLC-UWM202403-000017

PATIENT
  Age: 6 Year
  Sex: Male

DRUGS (2)
  1. IWILFIN [Suspect]
     Active Substance: EFLORNITHINE HYDROCHLORIDE
     Indication: Neuroblastoma
     Dosage: 1000MG/M2 BID
     Dates: start: 20240204, end: 20240304
  2. ETOPOSIDE [Concomitant]
     Active Substance: ETOPOSIDE
     Dosage: NOT PROVIDED
     Route: 048
     Dates: start: 20240207, end: 20240304

REACTIONS (2)
  - Neuroblastoma [Fatal]
  - Disease progression [Fatal]

NARRATIVE: CASE EVENT DATE: 20240305
